FAERS Safety Report 20863011 (Version 2)
Quarter: 2022Q2

REPORT INFORMATION
  Report Type: Spontaneous
  Country: US (occurrence: US)
  Receive Date: 20220523
  Receipt Date: 20220627
  Transmission Date: 20220721
  Serious: No
  Sender: FDA-Public Use
  Company Number: US-BRISTOL-MYERS SQUIBB COMPANY-2022-042602

PATIENT
  Age: 69 Year
  Sex: Male

DRUGS (1)
  1. REVLIMID [Suspect]
     Active Substance: LENALIDOMIDE
     Indication: Plasma cell myeloma in remission
     Dosage: FREQ:- TAKE 1 CAPSULE BY MOUTH DAILY FOR 21 DAYS EVERY 28 DAY CYCLE
     Route: 048

REACTIONS (5)
  - Fatigue [Unknown]
  - Diarrhoea [Unknown]
  - Constipation [Unknown]
  - Platelet count decreased [Unknown]
  - Blood pressure increased [Unknown]
